FAERS Safety Report 13849078 (Version 1)
Quarter: 2017Q3

REPORT INFORMATION
  Report Type: Spontaneous
  Country: US (occurrence: US)
  Receive Date: 20170809
  Receipt Date: 20170809
  Transmission Date: 20171127
  Serious: Yes (Life-Threatening, Hospitalization)
  Sender: FDA-Public Use
  Company Number: None

PATIENT
  Age: 72 Year
  Sex: Male
  Weight: 108.96 kg

DRUGS (17)
  1. ZIPRASIDONE. [Suspect]
     Active Substance: ZIPRASIDONE
     Indication: DRUG THERAPY
  2. NOVOLOG [Concomitant]
     Active Substance: INSULIN ASPART
  3. LATONOPROST [Concomitant]
  4. AMLODIPINE [Concomitant]
     Active Substance: AMLODIPINE BESYLATE
  5. TAMSULOSIN [Suspect]
     Active Substance: TAMSULOSIN
  6. POLYETH GLYCOL POWER [Concomitant]
  7. VITAMIN D [Concomitant]
     Active Substance: CHOLECALCIFEROL
  8. ASPIRIN. [Concomitant]
     Active Substance: ASPIRIN
  9. SEROQUEL [Suspect]
     Active Substance: QUETIAPINE FUMARATE
  10. CLONIDINE. [Concomitant]
     Active Substance: CLONIDINE
  11. LANTUS [Suspect]
     Active Substance: INSULIN GLARGINE
  12. LOSARTIN [Concomitant]
     Active Substance: LOSARTAN
  13. CARVEDILOL. [Concomitant]
     Active Substance: CARVEDILOL
  14. RISPERDAL [Suspect]
     Active Substance: RISPERIDONE
  15. LITHIUM. [Suspect]
     Active Substance: LITHIUM
     Dates: start: 1976, end: 2017
  16. DOCQLACE [Concomitant]
     Active Substance: DOCUSATE SODIUM
  17. SENNA [Concomitant]
     Active Substance: SENNA LEAF\SENNOSIDES\SENNOSIDES A AND B

REACTIONS (1)
  - Adverse drug reaction [None]

NARRATIVE: CASE EVENT DATE: 1975
